FAERS Safety Report 19955473 (Version 1)
Quarter: 2021Q4

REPORT INFORMATION
  Report Type: Report from Study
  Country: CA (occurrence: CA)
  Receive Date: 20211014
  Receipt Date: 20211014
  Transmission Date: 20220303
  Serious: Yes (Other)
  Sender: FDA-Public Use
  Company Number: CA-NOVARTISPH-NVSC2021CA177310

PATIENT
  Age: 52 Year
  Sex: Female

DRUGS (31)
  1. RITUXIMAB [Suspect]
     Active Substance: RITUXIMAB
     Indication: Nephrotic syndrome
     Dosage: 1 G, Q2W (1000 MG)
     Route: 042
     Dates: start: 20210730, end: 20210812
  2. RITUXIMAB [Suspect]
     Active Substance: RITUXIMAB
     Dosage: 1000 UNK
     Route: 042
  3. RISEDRONATE SODIUM [Suspect]
     Active Substance: RISEDRONATE SODIUM
     Indication: Osteoporosis
     Dosage: 35 MG (1 TABLET 1X/ 2 WEEKS AFTER WAKE UP, AT LEAST 30 MINUTES BEFORE BREAKFAST)
     Route: 065
     Dates: start: 20210513
  4. RISEDRONATE SODIUM [Suspect]
     Active Substance: RISEDRONATE SODIUM
     Dosage: 35 MG
     Route: 065
  5. NEORAL [Suspect]
     Active Substance: CYCLOSPORINE
     Indication: Product used for unknown indication
     Dosage: 100 UNK (1 CAPSULE 2X/DAY REGULARLY WITH 1 CAPSULE OF 25 MG(=125 MG))
     Route: 065
     Dates: start: 20210416
  6. NEORAL [Suspect]
     Active Substance: CYCLOSPORINE
     Dosage: 25 MG (1 CAPSULE 2X/DAY REGULARLY WITH 1 CAPSULE OF 100MG (=125 MG))
     Route: 065
     Dates: start: 20210416
  7. NEORAL [Suspect]
     Active Substance: CYCLOSPORINE
     Dosage: 100 MG (1 CAPSULE 2X/DAY REGULARLY WITH 1 CAPSULE OF 25 MG(=125 MG)
     Route: 065
     Dates: start: 20210603
  8. NEORAL [Suspect]
     Active Substance: CYCLOSPORINE
     Dosage: 25 MG (1 CAPSULE 1X/DAY REGULARLY WITH 1 CAPSULE OF 100MG (=125 MG))
     Route: 065
     Dates: start: 20210603
  9. NEORAL [Suspect]
     Active Substance: CYCLOSPORINE
     Dosage: 125 MG, BID
     Route: 065
  10. BENADRYL [Concomitant]
     Active Substance: DIPHENHYDRAMINE HYDROCHLORIDE
     Indication: Product used for unknown indication
     Dosage: 25 MG
     Route: 042
  11. CALCIUM [Concomitant]
     Active Substance: CALCIUM
     Indication: Osteoporosis
     Dosage: 500 MG (1 TABLET 2 X DAILY AT LUNCH AND DINNER )
     Route: 065
     Dates: start: 20210423
  12. CALCIUM [Concomitant]
     Active Substance: CALCIUM
     Dosage: 500 MG, BID
     Route: 065
  13. PANTOPRAZOLE [Concomitant]
     Active Substance: PANTOPRAZOLE
     Indication: Product used for unknown indication
     Dosage: 40 MG (ENTERAL TABLET) (1 TABLET DAILY WITH LUNCH REGULARLY )
     Route: 065
     Dates: start: 20210423
  14. PANTOPRAZOLE [Concomitant]
     Active Substance: PANTOPRAZOLE
     Dosage: 40 MG, QD
     Route: 065
  15. RAMIPRIL [Concomitant]
     Active Substance: RAMIPRIL
     Indication: Blood pressure measurement
     Dosage: 15 MG, QD
     Route: 065
  16. RAMIPRIL [Concomitant]
     Active Substance: RAMIPRIL
     Dosage: 10 MG (1 CAPSULE 1X DAILY AT LUNCH REGULARLY)
     Route: 065
     Dates: start: 20210909
  17. SULFATRIM [Concomitant]
     Active Substance: SULFAMETHOXAZOLE\TRIMETHOPRIM
     Indication: Product used for unknown indication
     Dosage: 960 MG (1 TABLET 3X/WEEK: MONDAY, WEDNESDAY, FRIDAY)
     Route: 065
     Dates: start: 20210802
  18. SULFATRIM [Concomitant]
     Active Substance: SULFAMETHOXAZOLE\TRIMETHOPRIM
     Dosage: 960 MG, TIW
     Route: 065
  19. VITAMIN D [Concomitant]
     Active Substance: VITAMIN D NOS
     Indication: Product used for unknown indication
     Dosage: 10000 IU, QW
     Route: 065
  20. PREDNISONE [Concomitant]
     Active Substance: PREDNISONE
     Indication: Product used for unknown indication
     Dosage: 50 MG (3 TABLET 1X DAILY IN THE MORNING AT BREAKFAST)
     Route: 065
     Dates: start: 20210909
  21. PREDNISONE [Concomitant]
     Active Substance: PREDNISONE
     Dosage: 30 MG, QD
     Route: 065
  22. SYNTHROID [Concomitant]
     Active Substance: LEVOTHYROXINE SODIUM
     Indication: Thyroid disorder
     Dosage: 112 UG, QD (1 TABLET DAILY WITH LUNCH REGULARLY)
     Route: 065
     Dates: start: 20210617
  23. ATORVASTATIN [Concomitant]
     Active Substance: ATORVASTATIN
     Indication: Product used for unknown indication
     Dosage: 40 MG, QD
     Route: 065
  24. FUROSEMIDE [Concomitant]
     Active Substance: FUROSEMIDE
     Indication: Product used for unknown indication
     Dosage: 80 MG (2 TABLETS 2X DAILY IN THE MORNING AND EVENING)
     Route: 065
     Dates: start: 20210513, end: 20210602
  25. FUROSEMIDE [Concomitant]
     Active Substance: FUROSEMIDE
     Dosage: 80 MG (1 TABLET 2X DAILY, MORNING AND EVENING)
     Route: 065
     Dates: start: 20210602
  26. FUROSEMIDE [Concomitant]
     Active Substance: FUROSEMIDE
     Dosage: 80 MG, BID
     Route: 065
  27. ACETAMINOPHEN [Concomitant]
     Active Substance: ACETAMINOPHEN
     Indication: Product used for unknown indication
     Dosage: 650 MG (30 MINS PREINFUSION)
     Route: 048
  28. METHYLPREDNISOLONE [Concomitant]
     Active Substance: METHYLPREDNISOLONE
     Indication: Product used for unknown indication
     Dosage: 100 MG (30 MINS PRE-INFUSION)
     Route: 042
  29. DIPHENHYDRAMINE [Concomitant]
     Active Substance: DIPHENHYDRAMINE
     Indication: Product used for unknown indication
     Dosage: 50 MG (30 MINS PRE-INFUSION)
     Route: 048
  30. JAMP-VITAMINE D3 [Concomitant]
     Indication: Product used for unknown indication
     Dosage: 10000 IU (1 CAPSULE 1X/WEEK WITH MEAL REGULARLY)
     Route: 065
     Dates: start: 20210423
  31. ATORVASTATIN CALCIUM [Concomitant]
     Active Substance: ATORVASTATIN CALCIUM
     Indication: Product used for unknown indication
     Dosage: 80 MG, QD (DAILY)
     Route: 065
     Dates: start: 20210617

REACTIONS (9)
  - Renal failure [Recovered/Resolved]
  - Throat tightness [Recovered/Resolved]
  - Cough [Recovered/Resolved]
  - Pharyngeal paraesthesia [Recovered/Resolved]
  - Lacrimation increased [Recovered/Resolved]
  - Blood pressure diastolic increased [Recovered/Resolved]
  - Throat irritation [Recovered/Resolved]
  - Flushing [Recovered/Resolved]
  - Off label use [Unknown]

NARRATIVE: CASE EVENT DATE: 20210730
